FAERS Safety Report 10242768 (Version 1)
Quarter: 2014Q2

REPORT INFORMATION
  Report Type: Other
  Country: JP (occurrence: JP)
  Receive Date: 20140617
  Receipt Date: 20140617
  Transmission Date: 20141212
  Serious: Yes (Other)
  Sender: FDA-Public Use
  Company Number: JP-BRISTOL-MYERS SQUIBB COMPANY-21046677

PATIENT
  Age: 40 Year
  Sex: Female

DRUGS (3)
  1. METGLUCO [Suspect]
     Indication: INSULIN RESISTANCE
     Route: 048
     Dates: start: 20120410, end: 20120722
  2. CLOMID [Concomitant]
     Indication: DYSURIA
     Route: 048
     Dates: start: 20120501, end: 20120706
  3. NOVORAPID [Concomitant]
     Route: 058
     Dates: start: 20121003, end: 20130228

REACTIONS (4)
  - Gestational diabetes [Recovering/Resolving]
  - General symptom [Unknown]
  - Maternal exposure during pregnancy [Recovered/Resolved]
  - Normal newborn [Recovered/Resolved]
